FAERS Safety Report 5749149-1 (Version None)
Quarter: 2008Q2

REPORT INFORMATION
  Report Type: 
  Country: None (occurrence: None)
  Receive Date: 20080527
  Receipt Date: 20080516
  Transmission Date: 20081010
  Serious: Yes (Death, Life-Threatening, Hospitalization)
  Sender: FDA-Public Use
  Company Number: RU-JNJFOC-20080501922

PATIENT
  Age: 66 Year
  Sex: Male
  Weight: 65 kg

DRUGS (5)
  1. REMICADE [Suspect]
     Indication: COLITIS ULCERATIVE
     Dosage: TOTAL # INFUSIONS: 1
     Route: 042
  2. PREDNISOLONE [Concomitant]
     Indication: COLITIS ULCERATIVE
     Route: 048
  3. CERUCAL [Concomitant]
     Indication: COLITIS ULCERATIVE
     Route: 048
  4. NO-SHPA [Concomitant]
     Indication: COLITIS ULCERATIVE
     Route: 048
  5. OMEZ [Concomitant]
     Indication: COLITIS ULCERATIVE
     Route: 048

REACTIONS (3)
  - CARDIAC FAILURE ACUTE [None]
  - HYPERTHERMIA [None]
  - INFUSION RELATED REACTION [None]
